FAERS Safety Report 18510437 (Version 1)
Quarter: 2020Q4

REPORT INFORMATION
  Report Type: Spontaneous
  Country: DE (occurrence: DE)
  Receive Date: 20201117
  Receipt Date: 20201117
  Transmission Date: 20210114
  Serious: Yes (Hospitalization)
  Sender: FDA-Public Use
  Company Number: DE-TEVA-2020-DE-1848635

PATIENT
  Age: 69 Year
  Sex: Male
  Weight: 56 kg

DRUGS (10)
  1. CANDESARTAN. [Concomitant]
     Active Substance: CANDESARTAN
     Dosage: 16 MILLIGRAM DAILY;  1-0-0-0
     Route: 048
  2. APIXABAN [Concomitant]
     Active Substance: APIXABAN
     Dosage: 10 MILLIGRAM DAILY;  1-0-1-0
  3. BISOPROLOL [Concomitant]
     Active Substance: BISOPROLOL
     Dosage: 5 MG, 1-0-0.5-0
     Route: 048
  4. KALINOR-RETARD P 600MG [Concomitant]
     Dosage: 1200 MILLIGRAM DAILY; 1-1-0-0
  5. ARCOXIA [Suspect]
     Active Substance: ETORICOXIB
     Dosage: 60 MILLIGRAM DAILY;  1-0-0-0
  6. JODID 200 [Concomitant]
     Active Substance: POTASSIUM IODIDE
     Dosage: 200 MICROGRAM DAILY;  1-0-0-0
     Route: 048
  7. BUDESONID [Suspect]
     Active Substance: BUDESONIDE
     Dosage: 4 DOSAGE FORMS DAILY; 2-0-2-0
  8. PREDNISOLON [Suspect]
     Active Substance: PREDNISOLONE
     Dosage: 20 MILLIGRAM DAILY;  1-0-0-0
     Route: 048
  9. LERCANIDIPIN [Concomitant]
     Active Substance: LERCANIDIPINE
     Dosage: 10 MILLIGRAM DAILY;  0-0-1-0
  10. PANTOPRAZOL [Concomitant]
     Active Substance: PANTOPRAZOLE SODIUM
     Dosage: 20 MILLIGRAM DAILY;  1-0-0-0

REACTIONS (5)
  - Pneumonia [Unknown]
  - Tachycardia [Unknown]
  - Condition aggravated [Unknown]
  - Arrhythmia [Unknown]
  - Atrial fibrillation [Unknown]
